FAERS Safety Report 24767026 (Version 1)
Quarter: 2024Q4

REPORT INFORMATION
  Report Type: Spontaneous
  Country: US (occurrence: US)
  Receive Date: 20241223
  Receipt Date: 20241223
  Transmission Date: 20250114
  Serious: No
  Sender: SANOFI AVENTIS
  Company Number: US-SA-2024SA377313

PATIENT
  Sex: Female
  Weight: 63.18 kg

DRUGS (11)
  1. DUPIXENT [Suspect]
     Active Substance: DUPILUMAB
     Indication: Dermatitis atopic
     Dosage: 300 MG, QOW
     Route: 058
     Dates: start: 2021
  2. CLOBETASOL [Concomitant]
     Active Substance: CLOBETASOL
  3. GABAPENTIN [Concomitant]
     Active Substance: GABAPENTIN
  4. QULIPTA [Concomitant]
     Active Substance: ATOGEPANT
  5. LISINOPRIL [Concomitant]
     Active Substance: LISINOPRIL
  6. BUSPIRONE HCL [Concomitant]
     Active Substance: BUSPIRONE HYDROCHLORIDE
  7. OMEPRAZOLE [Concomitant]
     Active Substance: OMEPRAZOLE
  8. ATORVASTATIN CALCIUM [Concomitant]
     Active Substance: ATORVASTATIN CALCIUM
  9. PAROXETINE HYDROCHLORIDE [Concomitant]
     Active Substance: PAROXETINE HYDROCHLORIDE
  10. AMLODIPINE BESYLATE [Concomitant]
     Active Substance: AMLODIPINE BESYLATE
  11. IBU [Concomitant]
     Active Substance: IBUPROFEN

REACTIONS (2)
  - Ulcer [Unknown]
  - Drug ineffective [Unknown]
